FAERS Safety Report 10566730 (Version 1)
Quarter: 2014Q4

REPORT INFORMATION
  Report Type: Spontaneous
  Country: SI (occurrence: SI)
  Receive Date: 20141105
  Receipt Date: 20141105
  Transmission Date: 20150529
  Serious: Yes (Other)
  Sender: FDA-Public Use
  Company Number: SI-TEVA-519790ISR

PATIENT
  Age: 64 Year
  Sex: Male

DRUGS (5)
  1. FRAXIPARINE [Concomitant]
     Active Substance: NADROPARIN CALCIUM
     Route: 058
  2. ONBREZ BREEZHALER 150 MICROGRAM [Concomitant]
     Dosage: 1 DOSAGE FORMS DAILY; 1 INHALATION PER DAY
  3. BERODUAL [Concomitant]
     Active Substance: FENOTEROL HYDROBROMIDE\IPRATROPIUM BROMIDE
     Dosage: 3X2 INHALATIONS PER DAY
  4. EPOSIN 20 MG/ML [Suspect]
     Active Substance: ETOPOSIDE
     Indication: SMALL CELL LUNG CANCER
     Route: 042
     Dates: start: 20141007, end: 20141009
  5. DORETA [Concomitant]
     Dosage: ONE TBL. AS NECESSARY
     Route: 048

REACTIONS (4)
  - Chest discomfort [Recovered/Resolved]
  - Pallor [Recovered/Resolved]
  - Erythema [Recovered/Resolved]
  - Dyspnoea [Recovered/Resolved]

NARRATIVE: CASE EVENT DATE: 20141009
